FAERS Safety Report 15945844 (Version 1)
Quarter: 2019Q1

REPORT INFORMATION
  Report Type: Spontaneous
  Country: US (occurrence: US)
  Receive Date: 20190211
  Receipt Date: 20190211
  Transmission Date: 20190417
  Serious: No
  Sender: FDA-Public Use
  Company Number: US-JNJFOC-20190137269

PATIENT
  Sex: Male
  Weight: 104.33 kg

DRUGS (2)
  1. LANTUS [Concomitant]
     Active Substance: INSULIN GLARGINE
     Indication: PRODUCT USED FOR UNKNOWN INDICATION
     Route: 065
  2. NIZORAL [Suspect]
     Active Substance: KETOCONAZOLE
     Indication: ROSACEA
     Route: 061

REACTIONS (2)
  - Product dose omission [Unknown]
  - Abnormal loss of weight [Unknown]
